FAERS Safety Report 6490623-0 (Version None)
Quarter: 2009Q4

REPORT INFORMATION
  Report Type: 
  Country: None (occurrence: None)
  Receive Date: 20091211
  Receipt Date: 20091207
  Transmission Date: 20100525
  Serious: Yes (Other)
  Sender: FDA-Public Use
  Company Number: A0758382A

PATIENT
  Sex: Female
  Weight: 71 kg

DRUGS (8)
  1. SERETIDE [Suspect]
     Indication: ASTHMA
     Route: 055
     Dates: start: 20071101
  2. COMBIVENT [Concomitant]
     Indication: ASTHMA
     Dates: start: 20071101
  3. OLCADIL [Concomitant]
     Dates: start: 20061101
  4. RISPERIDON [Concomitant]
     Dates: start: 20061101
  5. ALENDRONATE SODIUM [Concomitant]
     Dates: start: 20060101
  6. CITALOPRAM HYDROBROMIDE [Concomitant]
     Dates: start: 20071001, end: 20081001
  7. ACULAR [Concomitant]
     Dates: start: 20070101
  8. GARDENAL [Concomitant]
     Dates: start: 19980101

REACTIONS (4)
  - ASTHMATIC CRISIS [None]
  - DRUG ADMINISTRATION ERROR [None]
  - DRUG INEFFECTIVE [None]
  - FATIGUE [None]
